FAERS Safety Report 7818442-0 (Version None)
Quarter: 2011Q4

REPORT INFORMATION
  Report Type: 
  Country: None (occurrence: None)
  Receive Date: 20111017
  Receipt Date: 20111014
  Transmission Date: 20120403
  Serious: Yes (Death)
  Sender: FDA-Public Use
  Company Number: US-PFIZER INC-2011226542

PATIENT
  Sex: Male

DRUGS (1)
  1. REVATIO [Suspect]
     Indication: FALLOT'S TETRALOGY
     Dosage: 20 MG, 3X/DAY

REACTIONS (2)
  - FALLOT'S TETRALOGY [None]
  - RIGHT VENTRICULAR FAILURE [None]
